FAERS Safety Report 23338487 (Version 1)
Quarter: 2023Q4

REPORT INFORMATION
  Report Type: Spontaneous
  Country: US (occurrence: None)
  Receive Date: 20231223
  Receipt Date: 20231223
  Transmission Date: 20240110
  Serious: Yes (Hospitalization)
  Sender: FDA-Public Use
  Company Number: None

PATIENT
  Age: 3 Year
  Sex: Female
  Weight: 11.4 kg

DRUGS (1)
  1. CARBOPLATIN [Suspect]
     Active Substance: CARBOPLATIN
     Indication: Alanine aminotransferase increased
     Dates: start: 20230311, end: 20231204

REACTIONS (2)
  - Alanine aminotransferase increased [None]
  - Sick relative [None]

NARRATIVE: CASE EVENT DATE: 20231219
